FAERS Safety Report 10667875 (Version 1)
Quarter: 2014Q4

REPORT INFORMATION
  Report Type: Spontaneous
  Country: US (occurrence: None)
  Receive Date: 20141208
  Receipt Date: 20141208
  Transmission Date: 20150529
  Serious: No
  Sender: FDA-Public Use
  Company Number: 2014TUS006542

PATIENT
  Age: 22 Year
  Sex: Male
  Weight: 86.2 kg

DRUGS (2)
  1. BRINTELLIX [Suspect]
     Active Substance: VORTIOXETINE HYDROBROMIDE
     Indication: ANXIETY
     Dosage: 5 MG HALF A DAY, ORAL
     Route: 048
     Dates: start: 20140704, end: 20140713
  2. BRINTELLIX [Suspect]
     Active Substance: VORTIOXETINE HYDROBROMIDE
     Indication: DEPRESSION
     Dosage: 5 MG HALF A DAY, ORAL
     Route: 048
     Dates: start: 20140704, end: 20140713

REACTIONS (1)
  - Headache [None]

NARRATIVE: CASE EVENT DATE: 20140704
